FAERS Safety Report 6019976-4 (Version None)
Quarter: 2008Q4

REPORT INFORMATION
  Report Type: 
  Country: None (occurrence: None)
  Receive Date: 20081223
  Receipt Date: 20081211
  Transmission Date: 20090506
  Serious: Yes (Hospitalization)
  Sender: FDA-Public Use
  Company Number: 232951K08USA

PATIENT
  Age: 68 Year
  Sex: Female

DRUGS (4)
  1. REBIF [Suspect]
     Indication: MULTIPLE SCLEROSIS
     Dosage: 44 MCG, 3 IN 1 WEEKS, SUBCUTANEOUS
     Route: 058
     Dates: start: 20021211
  2. PAIN MEDICATION (ALL OTHER THERAPEUTIC PRODUCTS) [Concomitant]
  3. INSULIN (INSULIN) [Concomitant]
  4. TOPROL-XL [Concomitant]

REACTIONS (1)
  - CEREBROVASCULAR ACCIDENT [None]
